FAERS Safety Report 4418590-1 (Version None)
Quarter: 2004Q3

REPORT INFORMATION
  Report Type: 
  Country: None (occurrence: None)
  Receive Date: 20040809
  Receipt Date: 20021107
  Transmission Date: 20050211
  Serious: No
  Sender: FDA-Public Use
  Company Number: US-GLAXOSMITHKLINE-A0385992A

PATIENT
  Age: 38 Year
  Sex: Male
  Weight: 92.3 kg

DRUGS (2)
  1. PAXIL [Suspect]
     Dosage: 20MG PER DAY
     Route: 048
     Dates: start: 20010101
  2. KLONOPIN [Suspect]
     Dates: start: 20010101

REACTIONS (2)
  - SOMNOLENCE [None]
  - YAWNING [None]
